FAERS Safety Report 22647116 (Version 1)
Quarter: 2023Q2

REPORT INFORMATION
  Report Type: Spontaneous
  Country: IL (occurrence: IL)
  Receive Date: 20230627
  Receipt Date: 20230627
  Transmission Date: 20230722
  Serious: Yes (Other)
  Sender: FDA-Public Use
  Company Number: IL-BoehringerIngelheim-2023-BI-246426

PATIENT
  Age: 90 Year
  Sex: Female

DRUGS (1)
  1. PRAXBIND [Suspect]
     Active Substance: IDARUCIZUMAB
     Indication: Procoagulant therapy
     Dosage: THE PATIENT RECEIVED ONE AMPOULE.

REACTIONS (1)
  - Blood pressure decreased [Unknown]
